FAERS Safety Report 7887311-2 (Version None)
Quarter: 2011Q4

REPORT INFORMATION
  Report Type: 
  Country: None (occurrence: None)
  Receive Date: 20111102
  Receipt Date: 20110718
  Transmission Date: 20120403
  Serious: No
  Sender: FDA-Public Use
  Company Number: US-AMGEN-USASP2011036563

PATIENT
  Sex: Female

DRUGS (2)
  1. ENBREL [Suspect]
     Indication: MOBILITY DECREASED
     Dosage: 50 MG, QWK
     Dates: start: 20100430
  2. ENBREL [Suspect]
     Indication: MULTIPLE CONGENITAL ABNORMALITIES

REACTIONS (2)
  - JOINT INJURY [None]
  - MOBILITY DECREASED [None]
